FAERS Safety Report 5806135-0 (Version None)
Quarter: 2008Q3

REPORT INFORMATION
  Report Type: 
  Country: None (occurrence: None)
  Receive Date: 20080710
  Receipt Date: 20080707
  Transmission Date: 20090109
  Serious: Yes (Hospitalization, Other)
  Sender: FDA-Public Use
  Company Number: US-MERCK-0807USA00310

PATIENT
  Age: 81 Year
  Sex: Female

DRUGS (11)
  1. COSOPT [Suspect]
     Indication: GLAUCOMA
     Route: 047
     Dates: start: 20070801, end: 20070901
  2. CRESTOR [Concomitant]
     Route: 065
  3. HYDROCHLOROTHIAZIDE AND OLMESARTAN MEDOXOMIL [Concomitant]
     Route: 065
  4. TRICOR [Concomitant]
     Route: 065
  5. FOSAMAX [Concomitant]
     Route: 048
  6. ASPIRIN [Concomitant]
     Route: 065
  7. VITAMINS (UNSPECIFIED) [Concomitant]
     Route: 065
  8. FLAXSEED [Concomitant]
     Route: 065
  9. CAL-D-VITA [Concomitant]
     Route: 065
  10. REFRESH [Concomitant]
     Route: 047
  11. OMEGA-3 MARINE TRIGLYCERIDES [Concomitant]
     Route: 065

REACTIONS (4)
  - ASTHMA [None]
  - CHRONIC OBSTRUCTIVE PULMONARY DISEASE [None]
  - DYSPNOEA [None]
  - EMPHYSEMA [None]
